FAERS Safety Report 8832628 (Version 3)
Quarter: 2012Q4

REPORT INFORMATION
  Report Type: 
  Country: US (occurrence: US)
  Receive Date: 20121010
  Receipt Date: 20121211
  Transmission Date: 20130627
  Serious: Yes (Other)
  Sender: FDA-Public Use
  Company Number: US-PFIZER INC-2012224172

PATIENT
  Age: 9 Year
  Sex: Male

DRUGS (1)
  1. GENOTROPIN [Suspect]
     Indication: GROWTH HORMONE DEFICIENCY
     Dosage: 0.8 mg daily, needle use one daily
     Route: 058
     Dates: start: 20120731

REACTIONS (7)
  - Product quality issue [Unknown]
  - Injury [Recovered/Resolved]
  - Abnormal behaviour [Unknown]
  - Sleep disorder [Unknown]
  - Emotional disorder [Unknown]
  - Injection site pain [Unknown]
  - Irritability [Unknown]
